FAERS Safety Report 12481345 (Version 1)
Quarter: 2016Q2

REPORT INFORMATION
  Report Type: Spontaneous
  Country: None (occurrence: DE)
  Receive Date: 20160620
  Receipt Date: 20160620
  Transmission Date: 20160815
  Serious: Yes (Other)
  Sender: FDA-Public Use
  Company Number: DE-MERCK KGAA-1054037

PATIENT

DRUGS (1)
  1. NOVOTHYROX [Suspect]
     Active Substance: LEVOTHYROXINE SODIUM

REACTIONS (6)
  - Parkinson^s disease [None]
  - Bone neoplasm [None]
  - Salivary gland neoplasm [None]
  - Fatigue [None]
  - Feeling drunk [None]
  - Dizziness [None]
